FAERS Safety Report 25058364 (Version 2)
Quarter: 2025Q2

REPORT INFORMATION
  Report Type: Spontaneous
  Country: US (occurrence: US)
  Receive Date: 20250310
  Receipt Date: 20250404
  Transmission Date: 20250717
  Serious: No
  Sender: PFIZER
  Company Number: US-PFIZER INC-202500052471

PATIENT
  Age: 46 Year
  Sex: Female
  Weight: 97.1 kg

DRUGS (1)
  1. XELJANZ XR [Suspect]
     Active Substance: TOFACITINIB CITRATE
     Indication: Rheumatoid arthritis
     Dosage: 11 MG, DAILY
     Route: 048
     Dates: end: 20240621

REACTIONS (2)
  - Renal disorder [Not Recovered/Not Resolved]
  - Glomerular filtration rate decreased [Unknown]
